FAERS Safety Report 8490123-2 (Version None)
Quarter: 2012Q3

REPORT INFORMATION
  Report Type: 
  Country: None (occurrence: None)
  Receive Date: 20120705
  Receipt Date: 20120626
  Transmission Date: 20120928
  Serious: Yes (Death, Life-Threatening, Hospitalization)
  Sender: FDA-Public Use
  Company Number: LB-CELGENEUS-093-21880-12022827

PATIENT
  Sex: Female
  Weight: 60 kg

DRUGS (9)
  1. REVLIMID [Suspect]
     Indication: ACUTE MYELOID LEUKAEMIA
     Dosage: 15 MILLIGRAM
     Route: 048
     Dates: start: 20120124, end: 20120222
  2. RABEPRAZOLE SODIUM [Concomitant]
     Dosage: 20 MILLIGRAM
     Route: 048
  3. DAPSONE [Concomitant]
     Dosage: 100 MILLIGRAM
     Route: 065
  4. VORICONAZOLE [Concomitant]
     Dosage: 40 MILLIGRAM
     Route: 065
  5. EWIO-D [Concomitant]
     Dosage: 7142.8571
     Route: 065
  6. VALTREX [Concomitant]
     Dosage: 500 MILLIGRAM
     Route: 065
  7. ZANAMIVIR [Concomitant]
     Dosage: 10 MILLIGRAM
     Route: 065
  8. INH [Concomitant]
     Dosage: 300 MILLIGRAM
     Route: 065
  9. CYCLOSP [Concomitant]
     Dosage: 50 MILLIGRAM
     Route: 065

REACTIONS (1)
  - ACUTE MYELOID LEUKAEMIA [None]
